FAERS Safety Report 4588476-0 (Version None)
Quarter: 2005Q1

REPORT INFORMATION
  Report Type: 
  Country: None (occurrence: None)
  Receive Date: 20050222
  Receipt Date: 20021206
  Transmission Date: 20050727
  Serious: Yes (Death, Hospitalization, Other)
  Sender: FDA-Public Use
  Company Number: GB-AMGEN-IMM024826

PATIENT
  Sex: Female

DRUGS (6)
  1. ENBREL [Suspect]
     Indication: RHEUMATOID ARTHRITIS
     Route: 058
     Dates: start: 20020531, end: 20020720
  2. CYCLOSPORINE [Concomitant]
     Dates: start: 20020418, end: 20020601
  3. HYDROXYCHLOROQUINE SULFATE [Concomitant]
     Dates: start: 20020601
  4. DICLOFENAC SODIUM [Concomitant]
     Dates: end: 20020825
  5. METHOTREXATE [Concomitant]
     Dates: start: 20020101
  6. PREDNISOLONE [Concomitant]

REACTIONS (13)
  - ALOPECIA [None]
  - ANTINUCLEAR ANTIBODY POSITIVE [None]
  - ARRHYTHMIA [None]
  - CARDIOLIPIN ANTIBODY POSITIVE [None]
  - COMA [None]
  - DRUG INEFFECTIVE [None]
  - MOUTH ULCERATION [None]
  - PERICARDITIS [None]
  - PYREXIA [None]
  - RESUSCITATION [None]
  - SYSTEMIC LUPUS ERYTHEMATOSUS [None]
  - URINARY TRACT INFECTION [None]
  - WHITE BLOOD CELL COUNT DECREASED [None]
